FAERS Safety Report 21371543 (Version 1)
Quarter: 2022Q3

REPORT INFORMATION
  Report Type: Spontaneous
  Country: AT (occurrence: AT)
  Receive Date: 20220923
  Receipt Date: 20220923
  Transmission Date: 20221027
  Serious: Yes (Other)
  Sender: FDA-Public Use
  Company Number: AT-NOVARTISPH-NVSC2022AT215147

PATIENT
  Sex: Female

DRUGS (4)
  1. FULVESTRANT [Suspect]
     Active Substance: FULVESTRANT
     Indication: PIK3CA-activated mutation
     Dosage: UNK
     Route: 065
  2. FULVESTRANT [Suspect]
     Active Substance: FULVESTRANT
     Indication: Hormone receptor positive HER2 negative breast cancer
  3. IBRANCE [Concomitant]
     Active Substance: PALBOCICLIB
     Indication: PIK3CA-activated mutation
     Dosage: UNK
     Route: 065
  4. IBRANCE [Concomitant]
     Active Substance: PALBOCICLIB
     Indication: Hormone receptor positive HER2 negative breast cancer

REACTIONS (3)
  - Hormone receptor positive HER2 negative breast cancer [Unknown]
  - Malignant neoplasm progression [Unknown]
  - Metastases to bone [Unknown]
